FAERS Safety Report 9759704 (Version 1)
Quarter: 2013Q4

REPORT INFORMATION
  Report Type: Spontaneous
  Country: US (occurrence: US)
  Receive Date: 20131216
  Receipt Date: 20131216
  Transmission Date: 20140711
  Serious: No
  Sender: FDA-Public Use
  Company Number: US-GILEAD-2010-0029024

PATIENT
  Age: 70 Year
  Sex: Female
  Weight: 89.81 kg

DRUGS (31)
  1. LETAIRIS [Suspect]
     Indication: PULMONARY ARTERIAL HYPERTENSION
     Route: 048
     Dates: start: 20080923
  2. ARANESP [Concomitant]
  3. GLIMEPIRIDE [Concomitant]
  4. VENTAVIS [Concomitant]
  5. COLCHICINE [Concomitant]
  6. ALLOPURINOL [Concomitant]
  7. OXYGEN [Concomitant]
  8. PHENOBARBITAL [Concomitant]
  9. BONIVA [Concomitant]
  10. JANUVIA [Concomitant]
  11. ELAVIL [Concomitant]
  12. UD [Concomitant]
  13. ZOCOR [Concomitant]
  14. OPTIVE [Concomitant]
  15. RESTASIS [Concomitant]
  16. LASIX [Concomitant]
  17. ULTRAM [Concomitant]
  18. AMLODIPINE [Concomitant]
  19. ZITHROMAX [Concomitant]
  20. REVATIO [Concomitant]
  21. NEURONTIN [Concomitant]
  22. METOLAZONE [Concomitant]
  23. FOSINOPRIL SODIUM [Concomitant]
  24. MAG-OX [Concomitant]
  25. PRANDIN [Concomitant]
  26. ADVAIR [Concomitant]
  27. SPIRIVA [Concomitant]
  28. LEVOXYL [Concomitant]
  29. DEEP SEA NOSE SPRAY [Concomitant]
  30. VITAMIN D [Concomitant]
  31. CLONIDINE [Concomitant]

REACTIONS (1)
  - Epistaxis [Unknown]
